FAERS Safety Report 21003796 (Version 1)
Quarter: 2022Q2

REPORT INFORMATION
  Report Type: Report from Study
  Country: BR (occurrence: BR)
  Receive Date: 20220624
  Receipt Date: 20220624
  Transmission Date: 20220721
  Serious: Yes (Death, Hospitalization, Other)
  Sender: FDA-Public Use
  Company Number: BR-JNJFOC-20220648239

PATIENT
  Sex: Male
  Weight: 83 kg

DRUGS (3)
  1. SIMPONI [Suspect]
     Active Substance: GOLIMUMAB
     Indication: Rheumatoid arthritis
     Route: 058
  2. SIMPONI [Suspect]
     Active Substance: GOLIMUMAB
  3. SIMPONI [Suspect]
     Active Substance: GOLIMUMAB

REACTIONS (7)
  - Cardiac arrest [Fatal]
  - Hospitalisation [Unknown]
  - Bone tuberculosis [Unknown]
  - Renal disorder [Unknown]
  - Lung disorder [Unknown]
  - Aphasia [Unknown]
  - Memory impairment [Unknown]
